FAERS Safety Report 4815681-8 (Version None)
Quarter: 2005Q4

REPORT INFORMATION
  Report Type: 
  Country: None (occurrence: None)
  Receive Date: 20051027
  Receipt Date: 20051015
  Transmission Date: 20060501
  Serious: Yes (Other)
  Sender: FDA-Public Use
  Company Number: 2005143166

PATIENT
  Age: 50 Year
  Sex: Female
  Weight: 68.0396 kg

DRUGS (1)
  1. BENGAY ARTHRITIS EXTRA STRENGTH (MENTHOL, METHYL SALICYLATE) [Suspect]
     Dosage: UNSPECIFIED AMOUNT ONCE, TOPICAL
     Route: 061
     Dates: start: 20051013, end: 20051013

REACTIONS (8)
  - APPLICATION SITE DERMATITIS [None]
  - APPLICATION SITE PRURITUS [None]
  - CONTRAINDICATION TO MEDICAL TREATMENT [None]
  - DRUG INEFFECTIVE [None]
  - OEDEMA PERIPHERAL [None]
  - PAIN IN EXTREMITY [None]
  - PRURITUS [None]
  - RASH [None]
